FAERS Safety Report 24426202 (Version 3)
Quarter: 2024Q4

REPORT INFORMATION
  Report Type: Spontaneous
  Country: US (occurrence: US)
  Receive Date: 20241011
  Receipt Date: 20241023
  Transmission Date: 20250115
  Serious: Yes (Other)
  Sender: RECKITT BENCKISER
  Company Number: US-PROD-AS2-212756134-20-24-USA-RB-0008738

PATIENT
  Age: 69 Year
  Sex: Female
  Weight: 90.718 kg

DRUGS (2)
  1. MUCINEX INSTASOOTHE SORE THROAT PLUS PAIN RELIEF (BENZOCAINE\MENTHOL) [Suspect]
     Active Substance: BENZOCAINE\MENTHOL
     Indication: Oropharyngeal pain
     Dosage: UNKNOWN
     Route: 048
     Dates: start: 20241004
  2. ROBITUSSIN (GUAIFENESIN) [Concomitant]
     Active Substance: GUAIFENESIN
     Indication: Cough
     Dosage: 2 TEASPOONFULS EVERY 4 HOURS
     Route: 065

REACTIONS (6)
  - Near death experience [Recovered/Resolved]
  - Pneumonia [Recovered/Resolved]
  - Swollen tongue [Recovered/Resolved]
  - Throat tightness [Recovered/Resolved]
  - Malaise [Recovered/Resolved]
  - Feeling abnormal [Recovered/Resolved]

NARRATIVE: CASE EVENT DATE: 20241004
